FAERS Safety Report 8854451 (Version 1)
Quarter: 2012Q4

REPORT INFORMATION
  Report Type: 
  Country: FI (occurrence: FI)
  Receive Date: 20121023
  Receipt Date: 20121023
  Transmission Date: 20130627
  Serious: Yes (Hospitalization, Other)
  Sender: FDA-Public Use
  Company Number: FI-PFIZER INC-2012256892

PATIENT
  Age: 42 Year
  Sex: Female

DRUGS (3)
  1. SALAZOPYRINE [Suspect]
     Indication: ARTHROPATHY
     Dosage: 2 g daily
     Route: 048
     Dates: start: 20120706, end: 20120902
  2. KETEK [Suspect]
     Indication: SINUSITIS
     Dosage: 0.8 g daily
     Route: 048
     Dates: start: 20120903, end: 20120905
  3. CEFALEXIN [Suspect]
     Indication: SINUSITIS
     Dosage: 750 mg, 2x/day
     Dates: start: 20120905, end: 20120910

REACTIONS (3)
  - Drug reaction with eosinophilia and systemic symptoms [Not Recovered/Not Resolved]
  - Respiratory tract infection [Unknown]
  - Sinusitis [Recovering/Resolving]
